FAERS Safety Report 11203916 (Version 8)
Quarter: 2016Q4

REPORT INFORMATION
  Report Type: Spontaneous
  Country: US (occurrence: US)
  Receive Date: 20150619
  Receipt Date: 20161222
  Transmission Date: 20170206
  Serious: Yes (Hospitalization, Disabling, Other)
  Sender: FDA-Public Use
  Company Number: US-GLAXOSMITHKLINE-US2015GSK086196

PATIENT
  Age: 58 Year
  Sex: Female

DRUGS (7)
  1. ALTACE [Concomitant]
     Active Substance: RAMIPRIL
     Indication: BLOOD PRESSURE MEASUREMENT
  2. LORAZEPAM. [Concomitant]
     Active Substance: LORAZEPAM
  3. METOPROLOL. [Concomitant]
     Active Substance: METOPROLOL
     Indication: BLOOD PRESSURE MEASUREMENT
  4. LAMICTAL XR [Suspect]
     Active Substance: LAMOTRIGINE
     Indication: SEIZURE
     Dosage: UNK, U
     Route: 065
     Dates: start: 2007
  5. NARDIL [Suspect]
     Active Substance: PHENELZINE SULFATE
     Indication: ANTIDEPRESSANT THERAPY
     Dosage: 4 DF, QD
     Dates: start: 201603
  6. NARDIL [Suspect]
     Active Substance: PHENELZINE SULFATE
     Indication: ANXIETY
  7. ASPIRIN. [Concomitant]
     Active Substance: ASPIRIN

REACTIONS (20)
  - Road traffic accident [Unknown]
  - Fall [Unknown]
  - Pain [Unknown]
  - Asthenia [Unknown]
  - Disability [Unknown]
  - Adverse event [Unknown]
  - Affective disorder [Unknown]
  - Buttock injury [Unknown]
  - Ill-defined disorder [Unknown]
  - Hospitalisation [Unknown]
  - Fractured coccyx [Unknown]
  - Protein deficiency [Unknown]
  - Drug ineffective [Unknown]
  - Dizziness [Unknown]
  - Loss of consciousness [Unknown]
  - Syncope [Unknown]
  - Feeling abnormal [Unknown]
  - Sleep disorder [Unknown]
  - Drug dose omission [Unknown]
  - Headache [Unknown]

NARRATIVE: CASE EVENT DATE: 201603
